FAERS Safety Report 14143196 (Version 7)
Quarter: 2018Q1

REPORT INFORMATION
  Report Type: Report from Study
  Country: US (occurrence: US)
  Receive Date: 20171030
  Receipt Date: 20180320
  Transmission Date: 20180508
  Serious: Yes (Hospitalization)
  Sender: FDA-Public Use
  Company Number: US-ACTELION-A-US2017-161574

PATIENT
  Age: 67 Year
  Sex: Male
  Weight: 79.37 kg

DRUGS (11)
  1. OPSUMIT [Suspect]
     Active Substance: MACITENTAN
     Indication: PULMONARY HYPERTENSION
     Dosage: 10 MG, QD
     Route: 048
     Dates: start: 2017
  2. WARFARIN [Suspect]
     Active Substance: WARFARIN
     Indication: PRODUCT USED FOR UNKNOWN INDICATION
     Dosage: 4 MG, 1 TAB SUN, THURS. 1.5 TAB, SAT, MON, TUES, WED., FRI
     Route: 065
     Dates: start: 201712
  3. FUROSEMIDE. [Concomitant]
     Active Substance: FUROSEMIDE
     Dosage: 40 MG, EVERY OTHER DAY
     Dates: start: 2016
  4. ADEMPAS [Concomitant]
     Active Substance: RIOCIGUAT
  5. XARELTO [Concomitant]
     Active Substance: RIVAROXABAN
  6. TRAMADOL. [Concomitant]
     Active Substance: TRAMADOL
     Dosage: 50 MG, TID
     Dates: start: 201712
  7. BACLOFEN. [Concomitant]
     Active Substance: BACLOFEN
     Dosage: 10 MG, QD
     Dates: start: 2018
  8. VITAMIN D [Concomitant]
     Active Substance: CHOLECALCIFEROL
     Dosage: 1000 MG, QD
     Dates: start: 20180130
  9. SILDENAFIL CITRATE. [Concomitant]
     Active Substance: SILDENAFIL CITRATE
  10. MELATONIN [Concomitant]
     Active Substance: MELATONIN
     Dosage: 5 MG, QD, 1 - 2 TABLETS AT BED PRN
     Dates: start: 2018
  11. AMLODIPINE [Concomitant]
     Active Substance: AMLODIPINE BESYLATE

REACTIONS (28)
  - Oropharyngeal pain [Not Recovered/Not Resolved]
  - Pulmonary congestion [Unknown]
  - Seasonal allergy [Unknown]
  - Vomiting [Not Recovered/Not Resolved]
  - Unevaluable event [Not Recovered/Not Resolved]
  - Dizziness [Unknown]
  - Nausea [Not Recovered/Not Resolved]
  - Epistaxis [Unknown]
  - Nasopharyngitis [Unknown]
  - Swelling face [Unknown]
  - Ear infection [Not Recovered/Not Resolved]
  - Head injury [Unknown]
  - Dry throat [Not Recovered/Not Resolved]
  - Productive cough [Unknown]
  - Headache [Not Recovered/Not Resolved]
  - Nasal congestion [Not Recovered/Not Resolved]
  - Back pain [Unknown]
  - Confusional state [Unknown]
  - Laceration [Recovering/Resolving]
  - Paraesthesia [Not Recovered/Not Resolved]
  - Fall [Unknown]
  - Rhinorrhoea [Not Recovered/Not Resolved]
  - Condition aggravated [Not Recovered/Not Resolved]
  - Arthritis [Unknown]
  - Loss of consciousness [Recovered/Resolved]
  - Sputum discoloured [Unknown]
  - Asthma [Unknown]
  - Neck injury [Unknown]

NARRATIVE: CASE EVENT DATE: 2017
